FAERS Safety Report 13627911 (Version 1)
Quarter: 2017Q2

REPORT INFORMATION
  Report Type: Spontaneous
  Country: US (occurrence: US)
  Receive Date: 20170607
  Receipt Date: 20170607
  Transmission Date: 20170830
  Serious: Yes (Other)
  Sender: FDA-Public Use
  Company Number: US-OMEROS CORPORATION-2017OME00006

PATIENT
  Age: 63 Year
  Sex: Female
  Weight: 61.68 kg

DRUGS (31)
  1. OMIDRIA [Suspect]
     Active Substance: KETOROLAC\PHENYLEPHRINE
     Indication: INTRAOCULAR LENS IMPLANT
  2. CYCLOPENTOLATE. [Concomitant]
     Active Substance: CYCLOPENTOLATE
     Indication: INTRAOCULAR LENS IMPLANT
  3. FENTANYL. [Concomitant]
     Active Substance: FENTANYL
     Indication: CATARACT OPERATION
     Dosage: 2 ML, AS NEEDED
     Route: 042
     Dates: start: 20170420, end: 20170420
  4. BUPIVICAINE [Concomitant]
     Active Substance: BUPIVACAINE
     Indication: CATARACT OPERATION
     Dosage: 1 DROP, 3X/DAY EVERY 5 MINUTES X3
     Dates: start: 20170420, end: 20170420
  5. FENTANYL. [Concomitant]
     Active Substance: FENTANYL
     Indication: INTRAOCULAR LENS IMPLANT
  6. CLONAZEPAM. [Concomitant]
     Active Substance: CLONAZEPAM
     Dosage: 1 MG, 1X/DAY
  7. HCTZ [Concomitant]
     Active Substance: HYDROCHLOROTHIAZIDE
     Dosage: 12.5 MG, UNK
  8. BACTERIOSTATIC SODIUM CHLORIDE [Concomitant]
     Active Substance: SODIUM CHLORIDE
     Indication: INTRAOCULAR LENS IMPLANT
  9. GATIFLOXACIN. [Concomitant]
     Active Substance: GATIFLOXACIN
     Indication: INTRAOCULAR LENS IMPLANT
  10. XYLOCAINE MPF PLAIN [Concomitant]
     Indication: CATARACT OPERATION
     Dosage: UNK
     Dates: start: 20170420, end: 20170420
  11. VERSED [Concomitant]
     Active Substance: MIDAZOLAM HYDROCHLORIDE
     Indication: CATARACT OPERATION
     Dosage: 2 MG, UNK
     Route: 042
     Dates: start: 20170420, end: 20170420
  12. VERSED [Concomitant]
     Active Substance: MIDAZOLAM HYDROCHLORIDE
     Indication: INTRAOCULAR LENS IMPLANT
  13. PAXIL [Concomitant]
     Active Substance: PAROXETINE HYDROCHLORIDE
     Dosage: 20 MG, 1X/DAY
  14. VALIUM [Concomitant]
     Active Substance: DIAZEPAM
     Dosage: 5 MG, UNK
     Route: 048
     Dates: start: 20170420, end: 20170420
  15. PHENYLEPHRINE [Concomitant]
     Active Substance: PHENYLEPHRINE\PHENYLEPHRINE HYDROCHLORIDE
     Indication: CATARACT OPERATION
     Dosage: 1 DROP, 2X/DAY EVERY 15 MINUTES X2
     Dates: start: 20170420, end: 20170420
  16. TROPICAMIDE. [Concomitant]
     Active Substance: TROPICAMIDE
     Indication: INTRAOCULAR LENS IMPLANT
  17. CYCLOPENTOLATE. [Concomitant]
     Active Substance: CYCLOPENTOLATE
     Indication: CATARACT OPERATION
     Dosage: 1 DROP, 2X/DAY EVERY 15 MINUTES X2
     Dates: start: 20170420, end: 20170420
  18. XYLOCAINE MPF PLAIN [Concomitant]
     Indication: INTRAOCULAR LENS IMPLANT
  19. BUPIVICAINE [Concomitant]
     Active Substance: BUPIVACAINE
     Indication: INTRAOCULAR LENS IMPLANT
  20. TETRACAINE. [Concomitant]
     Active Substance: TETRACAINE
     Indication: CATARACT OPERATION
     Dosage: UNK
     Dates: start: 20170420, end: 20170420
  21. TETRACAINE. [Concomitant]
     Active Substance: TETRACAINE
     Indication: INTRAOCULAR LENS IMPLANT
  22. BACTERIOSTATIC SODIUM CHLORIDE [Concomitant]
     Active Substance: SODIUM CHLORIDE
     Indication: CATARACT OPERATION
     Dosage: 500 ML, UNK
     Dates: start: 20170420, end: 20170420
  23. OMIDRIA [Suspect]
     Active Substance: KETOROLAC\PHENYLEPHRINE
     Indication: CATARACT OPERATION
     Dosage: 4 ML, ONCE
     Route: 031
     Dates: start: 20170420, end: 20170420
  24. PROCRIT [Concomitant]
     Active Substance: ERYTHROPOIETIN
     Dosage: UNK, 1X/WEEK EVERY TUESDAY
     Route: 058
  25. PROVISC [Concomitant]
     Indication: CATARACT OPERATION
     Dosage: UNK
     Dates: start: 20170420, end: 20170420
  26. PROVISC [Concomitant]
     Indication: INTRAOCULAR LENS IMPLANT
  27. GATIFLOXACIN. [Concomitant]
     Active Substance: GATIFLOXACIN
     Indication: CATARACT OPERATION
     Dosage: 1 DROP, 2X/DAY EVERY 15 MINUTES X2
     Dates: start: 20170420, end: 20170420
  28. PHENYLEPHRINE [Concomitant]
     Active Substance: PHENYLEPHRINE\PHENYLEPHRINE HYDROCHLORIDE
     Indication: INTRAOCULAR LENS IMPLANT
  29. TROPICAMIDE. [Concomitant]
     Active Substance: TROPICAMIDE
     Indication: CATARACT OPERATION
     Dosage: 1 DROP, 2X/DAY EVERY 15 MINUTES X2
     Dates: start: 20170420, end: 20170420
  30. ZOFRAN [Concomitant]
     Active Substance: ONDANSETRON HYDROCHLORIDE
     Indication: CATARACT OPERATION
     Dosage: 4 MG, UNK
     Route: 042
     Dates: start: 20170420, end: 20170420
  31. ZOFRAN [Concomitant]
     Active Substance: ONDANSETRON HYDROCHLORIDE
     Indication: INTRAOCULAR LENS IMPLANT

REACTIONS (1)
  - Endophthalmitis [Unknown]

NARRATIVE: CASE EVENT DATE: 20170424
